FAERS Safety Report 5164004-6 (Version None)
Quarter: 2006Q4

REPORT INFORMATION
  Report Type: 
  Country: None (occurrence: None)
  Receive Date: 20061204
  Receipt Date: 20061122
  Transmission Date: 20070319
  Serious: Yes (Other)
  Sender: FDA-Public Use
  Company Number: CA-BRISTOL-MYERS SQUIBB COMPANY-13586870

PATIENT
  Age: 56 Year
  Sex: Female

DRUGS (11)
  1. ABATACEPT [Suspect]
     Indication: RHEUMATOID ARTHRITIS
     Route: 042
     Dates: start: 20040202, end: 20061107
  2. METHOTREXATE [Concomitant]
     Route: 048
     Dates: start: 20030412
  3. VITAMIN B-50 [Concomitant]
     Route: 048
     Dates: start: 20010101
  4. ACETAMINOPHEN [Concomitant]
     Route: 048
     Dates: start: 19930101
  5. TYLENOL W/ CODEINE NO. 3 [Concomitant]
     Route: 048
     Dates: start: 20030101
  6. FOLIC ACID [Concomitant]
     Dates: start: 20021001
  7. CHONDROITIN SULFATE + GLUCOSAMINE [Concomitant]
     Route: 048
     Dates: start: 20010101
  8. RABEPRAZOLE SODIUM [Concomitant]
     Route: 048
     Dates: start: 20040826
  9. CELEBREX [Concomitant]
     Route: 048
     Dates: start: 19990101
  10. VITAMIN E [Concomitant]
     Route: 048
     Dates: start: 20030101
  11. SALMON OIL [Concomitant]
     Route: 048
     Dates: start: 20010101

REACTIONS (1)
  - NEOPLASM MALIGNANT [None]
